FAERS Safety Report 16074505 (Version 2)
Quarter: 2019Q2

REPORT INFORMATION
  Report Type: Spontaneous
  Country: US (occurrence: US)
  Receive Date: 20190314
  Receipt Date: 20190628
  Transmission Date: 20190711
  Serious: No
  Sender: FDA-Public Use
  Company Number: US-VIFOR (INTERNATIONAL) INC.-VIT-2019-02326

PATIENT
  Sex: Female
  Weight: 99.88 kg

DRUGS (11)
  1. CALCITRIOL. [Concomitant]
     Active Substance: CALCITRIOL
  2. RENVELA [Concomitant]
     Active Substance: SEVELAMER CARBONATE
  3. FUROSEMIDE. [Concomitant]
     Active Substance: FUROSEMIDE
  4. VELTASSA [Suspect]
     Active Substance: PATIROMER
     Indication: BLOOD POTASSIUM INCREASED
     Route: 048
     Dates: start: 2018, end: 2018
  5. JANUVIA [Concomitant]
     Active Substance: SITAGLIPTIN PHOSPHATE
  6. MORPHINE [Concomitant]
     Active Substance: MORPHINE
  7. VITAMIN D [Concomitant]
     Active Substance: VITAMIN D NOS
  8. LISINOPRIL. [Concomitant]
     Active Substance: LISINOPRIL
  9. GLIPIZIDE. [Concomitant]
     Active Substance: GLIPIZIDE
  10. WARFARIN [Concomitant]
     Active Substance: WARFARIN
  11. ROSUVASTATIN. [Concomitant]
     Active Substance: ROSUVASTATIN

REACTIONS (1)
  - Off label use [Unknown]

NARRATIVE: CASE EVENT DATE: 2018
